FAERS Safety Report 5232460-0 (Version None)
Quarter: 2007Q1

REPORT INFORMATION
  Report Type: 
  Country: None (occurrence: None)
  Receive Date: 20070205
  Receipt Date: 20070119
  Transmission Date: 20070707
  Serious: Yes (Death)
  Sender: FDA-Public Use
  Company Number: 233999

PATIENT
  Age: 56 Year
  Sex: Female
  Weight: 86 kg

DRUGS (3)
  1. HERCEPTIN [Suspect]
     Indication: BREAST CANCER METASTATIC
     Dosage: 340 MG, UNKNOWN, UNKNOWN
     Dates: start: 20061201, end: 20061201
  2. POLARAMINE (DEXCHLORPHENAIRAMINE MALEATE) [Concomitant]
  3. METHYLPREDNISOLONE [Concomitant]

REACTIONS (2)
  - ANAPHYLACTIC SHOCK [None]
  - CIRCULATORY COLLAPSE [None]
